APPROVED DRUG PRODUCT: CLOMIPRAMINE HYDROCHLORIDE
Active Ingredient: CLOMIPRAMINE HYDROCHLORIDE
Strength: 50MG
Dosage Form/Route: CAPSULE;ORAL
Application: A208632 | Product #002
Applicant: AMNEAL PHARMACEUTICALS CO GMBH
Approved: Oct 31, 2018 | RLD: No | RS: No | Type: DISCN